FAERS Safety Report 4340735-2 (Version None)
Quarter: 2004Q2

REPORT INFORMATION
  Report Type: 
  Country: None (occurrence: None)
  Receive Date: 20040414
  Receipt Date: 20040402
  Transmission Date: 20050107
  Serious: Yes (Other)
  Sender: FDA-Public Use
  Company Number: US-JNJFOC-20040400980

PATIENT
  Age: 38 Year
  Sex: Male

DRUGS (2)
  1. REMICADE (INFLIXIMAB, RECOMBINANT) LYOPHILIZED POWDER [Suspect]
     Indication: COLITIS ULCERATIVE
     Dosage: 5 MG/KG INTRAVENOUS
     Route: 042
     Dates: start: 20040331
  2. IMURAN [Concomitant]

REACTIONS (1)
  - LUPUS-LIKE SYNDROME [None]
